FAERS Safety Report 9242617 (Version 2)
Quarter: 2013Q2

REPORT INFORMATION
  Report Type: Spontaneous
  Country: US (occurrence: US)
  Receive Date: 20130419
  Receipt Date: 20130510
  Transmission Date: 20140414
  Serious: Yes (Death, Life-Threatening, Hospitalization, Disabling, Other)
  Sender: FDA-Public Use
  Company Number: US-GLAXOSMITHKLINE-A1020561A

PATIENT
  Age: 84 Year
  Sex: Female
  Weight: 75.1 kg

DRUGS (9)
  1. VOTRIENT [Suspect]
     Indication: LEIOMYOSARCOMA METASTATIC
     Dosage: 200MG UNKNOWN
     Route: 065
     Dates: start: 20121207, end: 20130110
  2. LISINOPRIL [Concomitant]
  3. CARVEDILOL [Concomitant]
  4. OXYGEN [Concomitant]
  5. ESCITALOPRAM [Concomitant]
  6. AMLODIPINE [Concomitant]
  7. DEXAMETHASONE [Concomitant]
  8. FLINTSTONES MULTI VITAMIN [Concomitant]
  9. PROTEIN SHAKE [Concomitant]

REACTIONS (2)
  - Leiomyosarcoma metastatic [Unknown]
  - Disease progression [Fatal]
